FAERS Safety Report 8580660-4 (Version None)
Quarter: 2012Q3

REPORT INFORMATION
  Report Type: 
  Country: None (occurrence: None)
  Receive Date: 20120809
  Receipt Date: 20120801
  Transmission Date: 20120928
  Serious: Yes (Hospitalization, Other)
  Sender: FDA-Public Use
  Company Number: US-BIOGENIDEC-2012BI028243

PATIENT
  Age: 43 Year
  Sex: Female

DRUGS (2)
  1. AVONEX [Suspect]
     Route: 030
  2. AVONEX [Suspect]
     Indication: MULTIPLE SCLEROSIS
     Route: 030
     Dates: end: 20080425

REACTIONS (9)
  - MENTAL DISORDER [None]
  - MEMORY IMPAIRMENT [None]
  - PARAESTHESIA [None]
  - NEPHROLITHIASIS [None]
  - DEPRESSION [None]
  - MENTAL IMPAIRMENT [None]
  - SUICIDAL IDEATION [None]
  - CARDIAC OPERATION [None]
  - MYOCARDIAL INFARCTION [None]
